FAERS Safety Report 19419338 (Version 1)
Quarter: 2021Q2

REPORT INFORMATION
  Report Type: Spontaneous
  Country: US (occurrence: US)
  Receive Date: 20210615
  Receipt Date: 20210615
  Transmission Date: 20210717
  Serious: No
  Sender: FDA-Public Use
  Company Number: US-VERTEX PHARMACEUTICALS-2021-003932

PATIENT
  Age: 55 Year
  Sex: Female

DRUGS (2)
  1. TRIKAFTA [Suspect]
     Active Substance: ELEXACAFTOR\IVACAFTOR\TEZACAFTOR
     Indication: CYSTIC FIBROSIS
     Dosage: ELEXA100G/TEZA50MG/IVA75MG AND IVA150MG, UNK FREQ
     Route: 048
     Dates: start: 20201110
  2. TRIKAFTA [Suspect]
     Active Substance: ELEXACAFTOR\IVACAFTOR\TEZACAFTOR
     Dosage: ONLY BLUE PILLS , UNK FREQ
     Route: 048

REACTIONS (7)
  - Diarrhoea [Unknown]
  - Rash [Unknown]
  - Varicose vein [Recovering/Resolving]
  - Periorbital fat herniation [Not Recovered/Not Resolved]
  - Rhinorrhoea [Unknown]
  - Nasal congestion [Unknown]
  - Peripheral swelling [Recovering/Resolving]

NARRATIVE: CASE EVENT DATE: 202011
